FAERS Safety Report 17929658 (Version 3)
Quarter: 2020Q2

REPORT INFORMATION
  Report Type: Spontaneous
  Country: US (occurrence: US)
  Receive Date: 20200623
  Receipt Date: 20200629
  Transmission Date: 20200714
  Serious: No
  Sender: FDA-Public Use
  Company Number: US-PFIZER INC-2020238257

PATIENT
  Age: 65 Year
  Sex: Female
  Weight: 112.04 kg

DRUGS (7)
  1. CHANTIX [Suspect]
     Active Substance: VARENICLINE TARTRATE
     Indication: SMOKING CESSATION THERAPY
     Dosage: 0.5 MG, 1X/DAY (0.5MG TABLET BY MOUTH IN THE MORNING)
     Route: 048
     Dates: start: 20200615
  2. ALBUTEROL [SALBUTAMOL] [Suspect]
     Active Substance: ALBUTEROL
     Dosage: 90 UG (90MCG PER ACTUATOR/ ALBUTEROL INHALER JUST 1 TIME)
  3. ALBUTEROL SULFATE. [Suspect]
     Active Substance: ALBUTEROL SULFATE
     Dosage: UNK (0.083% 2.5MG)
  4. MOTRIN [Concomitant]
     Active Substance: IBUPROFEN
     Dosage: UNK, AS NEEDED
  5. CHANTIX [Suspect]
     Active Substance: VARENICLINE TARTRATE
     Dosage: 1 DF, 2X/DAY (1 CHANTIX BLUE PILL IN THE MORNING AND 1 CHANTIX BLUE PILL IN THE EVENING)
  6. ALBUTEROL SULFATE. [Suspect]
     Active Substance: ALBUTEROL SULFATE
     Dosage: UNK, (0.83% 3ML NEBULIZER NEPHRON VIAL, EVERY 6 HOURS, AS NEEDED)
     Dates: start: 20200615
  7. BREO ELLIPTA [Suspect]
     Active Substance: FLUTICASONE FUROATE\VILANTEROL TRIFENATATE
     Dosage: 1 DF, AS NEEDED (ONE PUFF A DAY AS NEEDED)
     Dates: start: 20200615

REACTIONS (7)
  - Headache [Not Recovered/Not Resolved]
  - Fatigue [Unknown]
  - Dizziness [Not Recovered/Not Resolved]
  - Nausea [Not Recovered/Not Resolved]
  - Nervousness [Unknown]
  - Overdose [Unknown]
  - Feeling jittery [Unknown]

NARRATIVE: CASE EVENT DATE: 20200615
